FAERS Safety Report 4359307-9 (Version None)
Quarter: 2004Q2

REPORT INFORMATION
  Report Type: 
  Country: None (occurrence: None)
  Receive Date: 20040517
  Receipt Date: 20040517
  Transmission Date: 20050107
  Serious: Yes (Life-Threatening, Disabling)
  Sender: FDA-Public Use
  Company Number: None

PATIENT
  Age: 45 Year
  Sex: Male

DRUGS (1)
  1. ZOCOR [Suspect]
     Indication: MYOPATHY
     Dosage: 10 MG 1/DAY PILL
     Dates: start: 20040126, end: 20040322

REACTIONS (4)
  - HEART RATE INCREASED [None]
  - JOINT SWELLING [None]
  - MYOSITIS [None]
  - RHABDOMYOLYSIS [None]
